FAERS Safety Report 6711154-6 (Version None)
Quarter: 2010Q2

REPORT INFORMATION
  Report Type: 
  Country: None (occurrence: None)
  Receive Date: 20100504
  Receipt Date: 20100504
  Transmission Date: 20101027
  Serious: Yes (Hospitalization)
  Sender: FDA-Public Use
  Company Number: None

PATIENT
  Age: 22 Month
  Sex: Female
  Weight: 10.5 kg

DRUGS (2)
  1. CHILDREN'S MOTRIN [Suspect]
     Indication: FEBRILE CONVULSION
     Dosage: MOTRIN 1 TSP Q6HRS PO
     Route: 048
     Dates: start: 20100204, end: 20100216
  2. CHILDREN'S MOTRIN [Suspect]

REACTIONS (7)
  - BODY TEMPERATURE INCREASED [None]
  - CYANOSIS [None]
  - DRUG HYPERSENSITIVITY [None]
  - OEDEMA PERIPHERAL [None]
  - PRURITUS [None]
  - RASH ERYTHEMATOUS [None]
  - WEIGHT INCREASED [None]
